FAERS Safety Report 18354136 (Version 2)
Quarter: 2020Q4

REPORT INFORMATION
  Report Type: Report from Study
  Country: US (occurrence: US)
  Receive Date: 20201007
  Receipt Date: 20201013
  Transmission Date: 20210114
  Serious: No
  Sender: FDA-Public Use
  Company Number: NVSC2020US252989

PATIENT
  Age: 61 Year
  Sex: Female

DRUGS (2)
  1. COSENTYX [Suspect]
     Active Substance: SECUKINUMAB
     Indication: PRODUCT USED FOR UNKNOWN INDICATION
     Dosage: UNK
     Route: 065
  2. COSENTYX [Suspect]
     Active Substance: SECUKINUMAB
     Route: 065

REACTIONS (3)
  - Product dose omission issue [Unknown]
  - Ill-defined disorder [Unknown]
  - Product availability issue [Unknown]

NARRATIVE: CASE EVENT DATE: 20200930
